FAERS Safety Report 13842712 (Version 3)
Quarter: 2017Q3

REPORT INFORMATION
  Report Type: Spontaneous
  Country: RU (occurrence: RU)
  Receive Date: 20170808
  Receipt Date: 20170908
  Transmission Date: 20171127
  Serious: Yes (Hospitalization)
  Sender: FDA-Public Use
  Company Number: RU-NOVAST LABORATORIES, LTD-RU-2017NOV000049

PATIENT
  Age: 86 Year
  Sex: Female

DRUGS (9)
  1. DEXAMETHAZONE [Concomitant]
     Active Substance: DEXAMETHASONE
     Indication: PRODUCT USED FOR UNKNOWN INDICATION
     Dosage: 1 ML, QD
     Route: 030
     Dates: start: 20150909
  2. TROPICAMIDE. [Suspect]
     Active Substance: TROPICAMIDE
     Indication: MYDRIASIS
     Dosage: 1 DROP, BID
     Route: 047
     Dates: start: 20150909, end: 20150914
  3. SULFACYL SODIUM [Concomitant]
     Indication: PRODUCT USED FOR UNKNOWN INDICATION
     Dosage: 2 DROPS, TID (3 TIMES A DAY IN BOTH EYES)
     Route: 047
     Dates: start: 20150903
  4. INDAPAMIDE. [Suspect]
     Active Substance: INDAPAMIDE
     Indication: HYPERTENSION
     Dosage: 2.5 MG, QD (PER DAY IN MORNING)
     Route: 048
     Dates: start: 20150903, end: 20150914
  5. DIAZEPAM. [Concomitant]
     Active Substance: DIAZEPAM
     Indication: SEDATION
     Dosage: 2 ML, QD
     Route: 030
     Dates: start: 20150903
  6. DICLOFENAC SODIUM. [Concomitant]
     Active Substance: DICLOFENAC SODIUM
     Indication: PRODUCT USED FOR UNKNOWN INDICATION
     Dosage: 3 ML, QD
     Route: 030
     Dates: start: 20150911
  7. ACETAZOLAMIDE. [Suspect]
     Active Substance: ACETAZOLAMIDE
     Indication: INTRAOCULAR PRESSURE DECREASED
     Dosage: 125 MG, BID
     Dates: start: 20150909
  8. TIMOLOL. [Suspect]
     Active Substance: TIMOLOL
     Indication: HYPERTENSION
     Dosage: 2 DROPS, BID
     Route: 047
     Dates: start: 20150903
  9. DEXAMETHASONE. [Concomitant]
     Active Substance: DEXAMETHASONE
     Indication: PRODUCT USED FOR UNKNOWN INDICATION
     Dosage: 2 DROPS, TID (3 TIMES A DAY IN LEFT EYE)
     Route: 047
     Dates: start: 20150903

REACTIONS (5)
  - Fall [Unknown]
  - Hypotonia [Unknown]
  - Bradycardia [Unknown]
  - Drug interaction [Unknown]
  - Hypotension [Unknown]

NARRATIVE: CASE EVENT DATE: 2015
